FAERS Safety Report 4637991-X (Version None)
Quarter: 2005Q2

REPORT INFORMATION
  Report Type: 
  Country: None (occurrence: None)
  Receive Date: 20050415
  Receipt Date: 20050405
  Transmission Date: 20051028
  Serious: Yes (Hospitalization)
  Sender: FDA-Public Use
  Company Number: HQWYE811207APR05

PATIENT
  Age: 41 Year
  Sex: Male

DRUGS (13)
  1. TAZOCIN (PIPERACILLIN/TAZOBACTAM, INJECTION) [Suspect]
     Indication: PSEUDOMONAS INFECTION
     Dosage: 4.5 G 1X PER 6 HR
     Route: 042
  2. TAZOCIN (PIPERACILLIN/TAZOBACTAM, INJECTION) [Suspect]
     Indication: STAPHYLOCOCCAL INFECTION
     Dosage: 4.5 G 1X PER 6 HR
     Route: 042
  3. CEFTRIAZONE (CEFTRIAXONE, ) [Suspect]
     Indication: PSEUDOMONAS INFECTION
     Dosage: 2 G 1X PER 24 HR
     Route: 042
  4. CEFTRIAZONE (CEFTRIAXONE, ) [Suspect]
     Indication: STAPHYLOCOCCAL INFECTION
     Dosage: 2 G 1X PER 24 HR
     Route: 042
  5. CIPROFLOXACIN (CIPROFLOXCIN, ) [Suspect]
     Indication: PSEUDOMONAS INFECTION
     Dosage: 400 MG 1X PER 12 HR
     Route: 042
  6. CIPROFLOXACIN (CIPROFLOXCIN, ) [Suspect]
     Indication: STAPHYLOCOCCAL INFECTION
     Dosage: 400 MG 1X PER 12 HR
     Route: 042
  7. CLINDAMYCIN (CLINDAMYCIN, ) [Suspect]
     Indication: LUNG INFILTRATION
     Dosage: 600 MG 1X PER 8 HR
     Route: 042
  8. GENTAMICIN [Suspect]
     Indication: STAPHYLOCOCCAL INFECTION
     Dosage: SEE IMAGE
     Route: 042
  9. GENTAMICIN [Suspect]
     Indication: STAPHYLOCOCCAL INFECTION
     Dosage: SEE IMAGE
     Route: 042
  10. RIFAMPICIN [Suspect]
     Indication: STAPHYLOCOCCAL INFECTION
     Dosage: 900 MG 1X PER 1 DAY
     Route: 042
  11. TICARILLIN DISODIUM/CLAVULANATE POTASSIUM [Suspect]
     Indication: LUNG INFILTRATION
     Dosage: 5.02 G 1X PER 6 HR
     Route: 042
  12. VANCOMYCIN [Suspect]
     Indication: PSEUDOMONAS INFECTION
     Dosage: 500 MG 1X PER 6 HR
     Route: 042
  13. VANCOMYCIN [Suspect]
     Indication: STAPHYLOCOCCAL INFECTION
     Dosage: 500 MG 1X PER 6 HR
     Route: 042

REACTIONS (10)
  - ACINETOBACTER INFECTION [None]
  - BACTERAEMIA [None]
  - BRADYCARDIA [None]
  - CIRCUMORAL OEDEMA [None]
  - EYE SWELLING [None]
  - HYPERTENSION [None]
  - KLEBSIELLA BACTERAEMIA [None]
  - MYDRIASIS [None]
  - NERVOUS SYSTEM DISORDER [None]
  - RASH MACULO-PAPULAR [None]
